FAERS Safety Report 6463190-5 (Version None)
Quarter: 2009Q4

REPORT INFORMATION
  Report Type: 
  Country: None (occurrence: None)
  Receive Date: 20091124
  Receipt Date: 20091116
  Transmission Date: 20100525
  Serious: Yes (Death, Hospitalization)
  Sender: FDA-Public Use
  Company Number: 2009AC000180

PATIENT
  Age: 62 Year
  Sex: Male

DRUGS (14)
  1. DIGOXIN [Suspect]
     Dosage: 0.125 MG; QD; PO
     Route: 048
  2. ASPIRIN [Concomitant]
  3. PLAVIX [Concomitant]
  4. CRESTOR [Concomitant]
  5. TRICOR [Concomitant]
  6. TOPROL-XL [Concomitant]
  7. COUMADIN [Concomitant]
  8. LASIX [Concomitant]
  9. ACTOS [Concomitant]
  10. PLAVIX [Concomitant]
  11. METFORMIN HCL [Concomitant]
  12. GLUCOPHAGE [Concomitant]
  13. PROTONIX [Concomitant]
  14. DIOVAN HCT [Concomitant]

REACTIONS (30)
  - ABDOMINAL PAIN UPPER [None]
  - ACUTE MYOCARDIAL INFARCTION [None]
  - ANAEMIA [None]
  - ANGINA UNSTABLE [None]
  - AORTIC ARTERIOSCLEROSIS [None]
  - ARRHYTHMIA [None]
  - ASTHENIA [None]
  - ATRIAL FIBRILLATION [None]
  - CARDIOMEGALY [None]
  - CHEST PAIN [None]
  - DIZZINESS EXERTIONAL [None]
  - DYSPNOEA [None]
  - ECONOMIC PROBLEM [None]
  - FATIGUE [None]
  - GASTROINTESTINAL HAEMORRHAGE [None]
  - HYPERLIPIDAEMIA [None]
  - HYPERTENSION [None]
  - INTRACARDIAC THROMBUS [None]
  - MELAENA [None]
  - MEMORY IMPAIRMENT [None]
  - MULTIPLE INJURIES [None]
  - NAUSEA [None]
  - OBESITY [None]
  - OEDEMA [None]
  - ORTHOPNOEA [None]
  - PEPTIC ULCER [None]
  - RENAL FAILURE [None]
  - SLEEP APNOEA SYNDROME [None]
  - SURGERY [None]
  - TACHYCARDIA [None]
